FAERS Safety Report 4884973-9 (Version None)
Quarter: 2006Q1

REPORT INFORMATION
  Report Type: 
  Country: None (occurrence: None)
  Receive Date: 20060119
  Receipt Date: 20060113
  Transmission Date: 20060701
  Serious: Yes (Other)
  Sender: FDA-Public Use
  Company Number: PHEH2006US00946

PATIENT
  Age: 77 Year
  Sex: Female

DRUGS (7)
  1. SINEMET [Suspect]
  2. AMANTADINE HCL [Suspect]
  3. REMERON [Suspect]
  4. PAXIL [Suspect]
  5. SEROQUEL [Suspect]
  6. PREDNISONE [Suspect]
  7. COMTAN [Suspect]
     Indication: PARKINSON'S DISEASE
     Dates: start: 20050101

REACTIONS (2)
  - HAEMOLYTIC ANAEMIA [None]
  - PANCYTOPENIA [None]
